FAERS Safety Report 24963970 (Version 1)
Quarter: 2025Q1

REPORT INFORMATION
  Report Type: Spontaneous
  Country: CA (occurrence: CA)
  Receive Date: 20250213
  Receipt Date: 20250213
  Transmission Date: 20250408
  Serious: Yes (Death, Other)
  Sender: CSL BEHRING
  Company Number: CA-BEH-2025195094

PATIENT
  Age: 65 Year
  Sex: Male

DRUGS (5)
  1. HUMAN IMMUNOGLOBULIN G [Suspect]
     Active Substance: HUMAN IMMUNOGLOBULIN G
     Indication: Primary immunodeficiency syndrome
     Dosage: 12 G, QW(1 EVERY 1 WEEKS)
     Route: 058
  2. COLESTIPOL [Concomitant]
     Active Substance: COLESTIPOL
     Indication: Malabsorption
     Route: 065
  3. SIMVASTATIN [Concomitant]
     Active Substance: SIMVASTATIN
     Indication: Product used for unknown indication
     Route: 031
  4. URSODIOL [Concomitant]
     Active Substance: URSODIOL
     Route: 065
  5. VITAMIN B12 [Concomitant]
     Active Substance: CYANOCOBALAMIN
     Indication: Product used for unknown indication
     Dosage: UNK UNK, QMT (1 EVERY 1 MONTHS)
     Route: 065

REACTIONS (6)
  - Chronic hepatic failure [Fatal]
  - Gastrointestinal disorder [Fatal]
  - Gastrointestinal pain [Fatal]
  - Flatulence [Fatal]
  - Weight decreased [Fatal]
  - Off label use [Unknown]
